FAERS Safety Report 19618483 (Version 2)
Quarter: 2022Q2

REPORT INFORMATION
  Report Type: Spontaneous
  Country: US (occurrence: None)
  Receive Date: 20210727
  Receipt Date: 20220621
  Transmission Date: 20220721
  Serious: No
  Sender: FDA-Public Use
  Company Number: US-ROCHE-2794996

PATIENT
  Sex: Female

DRUGS (2)
  1. CAPECITABINE [Suspect]
     Active Substance: CAPECITABINE
     Indication: Product used for unknown indication
     Route: 065
  2. TUKYSA [Suspect]
     Active Substance: TUCATINIB
     Indication: Breast cancer female
     Route: 065

REACTIONS (20)
  - Diarrhoea [Recovered/Resolved]
  - Nausea [Unknown]
  - Pruritus [Unknown]
  - Constipation [Unknown]
  - Hyperaesthesia [Unknown]
  - Ill-defined disorder [Unknown]
  - Fatigue [Unknown]
  - Migraine [Unknown]
  - Ocular icterus [Unknown]
  - Insomnia [Unknown]
  - Pain in extremity [Not Recovered/Not Resolved]
  - Neuropathy peripheral [Recovering/Resolving]
  - Hypoaesthesia oral [Not Recovered/Not Resolved]
  - Blood bilirubin increased [Unknown]
  - Hyperaesthesia teeth [Unknown]
  - Muscle spasms [Unknown]
  - Rash [Unknown]
  - Abdominal pain upper [Unknown]
  - Muscular weakness [Unknown]
  - Adverse reaction [Unknown]
